FAERS Safety Report 11617707 (Version 2)
Quarter: 2016Q1

REPORT INFORMATION
  Report Type: Report from Study
  Country: VE (occurrence: VE)
  Receive Date: 20151009
  Receipt Date: 20160107
  Transmission Date: 20160525
  Serious: Yes (Death, Hospitalization, Other)
  Sender: FDA-Public Use
  Company Number: VE-ABBVIE-15K-178-1477742-00

PATIENT
  Age: 50 Year
  Sex: Female

DRUGS (1)
  1. HUMIRA [Suspect]
     Active Substance: ADALIMUMAB
     Indication: RHEUMATOID ARTHRITIS
     Route: 058
     Dates: start: 20140506, end: 201412

REACTIONS (10)
  - Pulmonary thrombosis [Fatal]
  - Pulmonary haemorrhage [Fatal]
  - Neoplasm malignant [Fatal]
  - Vomiting [Fatal]
  - Gastritis [Recovering/Resolving]
  - Pleural effusion [Fatal]
  - Deep vein thrombosis [Fatal]
  - Obstructive airways disorder [Fatal]
  - Papilloma viral infection [Fatal]
  - Fluid retention [Recovering/Resolving]

NARRATIVE: CASE EVENT DATE: 201509
